FAERS Safety Report 9326301 (Version 1)
Quarter: 2013Q3

REPORT INFORMATION
  Report Type: Spontaneous
  Country: US (occurrence: None)
  Receive Date: 20130603
  Receipt Date: 20130603
  Transmission Date: 20140515
  Serious: Yes (Hospitalization, Other)
  Sender: FDA-Public Use
  Company Number: None

PATIENT
  Age: 69 Year
  Sex: Female

DRUGS (1)
  1. HURRICANE SPRAY [Suspect]
     Dosage: 1/2 SECOND SPRAY, ORAL
     Route: 048
     Dates: start: 20130419

REACTIONS (1)
  - Methaemoglobinaemia [None]
